FAERS Safety Report 4614425-2 (Version None)
Quarter: 2005Q1

REPORT INFORMATION
  Report Type: 
  Country: None (occurrence: None)
  Receive Date: 20050321
  Receipt Date: 20050214
  Transmission Date: 20050727
  Serious: Yes (Hospitalization)
  Sender: FDA-Public Use
  Company Number: JP-MERCK-0502USA02055

PATIENT
  Age: 74 Year
  Sex: Female
  Weight: 51 kg

DRUGS (5)
  1. COZAAR [Suspect]
     Indication: HYPERTENSION
     Route: 048
     Dates: start: 20041129, end: 20050201
  2. ZOCOR [Suspect]
     Indication: HYPERLIPIDAEMIA
     Route: 048
     Dates: start: 20040929, end: 20050201
  3. FLUITRAN [Concomitant]
     Indication: HYPERTENSION
     Route: 048
     Dates: start: 20020101, end: 20050201
  4. BUFFERIN [Concomitant]
     Indication: CEREBRAL INFARCTION
     Route: 048
     Dates: start: 20030812, end: 20050201
  5. [THERAPY UNSPECIFIED] [Concomitant]
     Indication: CONSTIPATION
     Route: 048
     Dates: start: 20030215, end: 20050201

REACTIONS (10)
  - ALANINE AMINOTRANSFERASE INCREASED [None]
  - ANTINUCLEAR ANTIBODY POSITIVE [None]
  - ASPARTATE AMINOTRANSFERASE INCREASED [None]
  - BLOOD ALKALINE PHOSPHATASE INCREASED [None]
  - BLOOD IMMUNOGLOBULIN G INCREASED [None]
  - BLOOD LACTATE DEHYDROGENASE INCREASED [None]
  - DUODENAL ULCER [None]
  - GAMMA-GLUTAMYLTRANSFERASE INCREASED [None]
  - HEPATIC FUNCTION ABNORMAL [None]
  - JAUNDICE [None]
